FAERS Safety Report 16312624 (Version 1)
Quarter: 2019Q2

REPORT INFORMATION
  Report Type: Spontaneous
  Country: CA (occurrence: CA)
  Receive Date: 20190515
  Receipt Date: 20190515
  Transmission Date: 20190711
  Serious: Yes (Other)
  Sender: FDA-Public Use
  Company Number: CA-SA-2019SA130280

PATIENT
  Age: 68 Year
  Sex: Female

DRUGS (14)
  1. LEFLUNOMIDE. [Suspect]
     Active Substance: LEFLUNOMIDE
     Dosage: 20 MG, QD
     Route: 048
  2. HUMIRA [Suspect]
     Active Substance: ADALIMUMAB
     Indication: RHEUMATOID ARTHRITIS
     Dosage: SUBCUTANEOUS SOLUTION
     Route: 058
  3. RISEDRONATE [Concomitant]
     Active Substance: RISEDRONATE SODIUM
     Indication: BONE EROSION
     Dosage: 35 MG, QW
     Route: 048
  4. ERGOCALCIFEROL. [Concomitant]
     Active Substance: ERGOCALCIFEROL
     Dosage: 4000 IU, QD
  5. SULFASALAZINE. [Suspect]
     Active Substance: SULFASALAZINE
     Indication: RHEUMATOID ARTHRITIS
  6. ERYTHROMYCIN. [Suspect]
     Active Substance: ERYTHROMYCIN
     Indication: RHEUMATOID ARTHRITIS
  7. ORENCIA [Suspect]
     Active Substance: ABATACEPT
  8. HYDROXYCHLOROQUINE [Suspect]
     Active Substance: HYDROXYCHLOROQUINE
     Dosage: 400 MG, QD
     Route: 048
  9. NOVO-RYTHRO [Suspect]
     Active Substance: ERYTHROMYCIN
  10. METHOTREXATE. [Suspect]
     Active Substance: METHOTREXATE
     Indication: RHEUMATOID ARTHRITIS
     Dosage: 22.5 MG, QW
     Route: 048
  11. ENBREL [Suspect]
     Active Substance: ETANERCEPT
     Indication: RHEUMATOID ARTHRITIS
  12. MARIJUANA [Concomitant]
     Active Substance: CANNABIS SATIVA SUBSP. INDICA TOP
  13. WELLBUTRIN [Concomitant]
     Active Substance: BUPROPION HYDROCHLORIDE
     Indication: DEPRESSION
     Dosage: 300 MG, QD
  14. CELEBREX [Concomitant]
     Active Substance: CELECOXIB
     Dosage: 200 MG, BID

REACTIONS (16)
  - Drug hypersensitivity [Recovering/Resolving]
  - Nodule [Recovering/Resolving]
  - Drug intolerance [Recovering/Resolving]
  - Interstitial lung disease [Recovering/Resolving]
  - Foot deformity [Recovering/Resolving]
  - Influenza like illness [Recovering/Resolving]
  - Malaise [Recovering/Resolving]
  - Rheumatoid arthritis [Recovering/Resolving]
  - Drug ineffective [Recovering/Resolving]
  - Contraindicated product administered [Recovering/Resolving]
  - Cough [Recovering/Resolving]
  - Mass excision [Recovering/Resolving]
  - Stress [Recovering/Resolving]
  - Abdominal pain upper [Recovering/Resolving]
  - Bronchitis [Recovering/Resolving]
  - Therapeutic product effect decreased [Recovering/Resolving]
